FAERS Safety Report 9635647 (Version 1)
Quarter: 2013Q4

REPORT INFORMATION
  Report Type: Report from Study
  Country: FR (occurrence: FR)
  Receive Date: 20131021
  Receipt Date: 20131021
  Transmission Date: 20140711
  Serious: Yes (Death)
  Sender: FDA-Public Use
  Company Number: FR-GLAXOSMITHKLINE-A0959696B

PATIENT
  Age: 63 Year
  Sex: Female
  Weight: 41 kg

DRUGS (8)
  1. TRAMETINIB [Suspect]
     Indication: NON-SMALL CELL LUNG CANCER
     Dosage: 2MG PER DAY
     Route: 048
     Dates: start: 20111201, end: 20111222
  2. DUROGESIC [Concomitant]
     Indication: PAIN
     Dosage: 75MG PER DAY
     Route: 062
     Dates: start: 20111104
  3. MOTILIUM [Concomitant]
     Indication: VOMITING
     Dosage: 1TAB THREE TIMES PER DAY
     Route: 048
     Dates: start: 20111213
  4. NUROFEN [Concomitant]
     Indication: PAIN
     Dosage: 1TAB THREE TIMES PER DAY
     Route: 048
     Dates: start: 20111210, end: 20111222
  5. PRIMPERAN [Concomitant]
     Indication: VOMITING
     Dosage: 20MG THREE TIMES PER DAY
     Route: 048
     Dates: start: 20011220, end: 20111222
  6. PHYSIOLOGIC SERUM [Concomitant]
     Indication: FLUID REPLACEMENT
     Dosage: 500ML FOUR TIMES PER DAY
     Route: 042
     Dates: start: 20111223
  7. PHYSIOLOGIC SERUM [Concomitant]
     Indication: FLUID REPLACEMENT
     Dosage: 125ML PER DAY
     Route: 042
     Dates: start: 20111223
  8. PLITICAN [Concomitant]
     Indication: VOMITING
     Dosage: 50MG PER DAY
     Route: 042
     Dates: start: 20111223

REACTIONS (1)
  - Death [Fatal]
